FAERS Safety Report 14670125 (Version 1)
Quarter: 2018Q1

REPORT INFORMATION
  Report Type: Spontaneous
  Country: GB (occurrence: GB)
  Receive Date: 20180322
  Receipt Date: 20180322
  Transmission Date: 20180509
  Serious: Yes (Other)
  Sender: FDA-Public Use
  Company Number: GB-TEVA-2018-GB-873582

PATIENT
  Age: 49 Year
  Sex: Female
  Weight: 90 kg

DRUGS (1)
  1. NAPROXEN. [Suspect]
     Active Substance: NAPROXEN
     Indication: PLANTAR FASCIITIS
     Dosage: 500 MILLIGRAM DAILY;
     Route: 048

REACTIONS (3)
  - Urticaria [Recovered/Resolved]
  - Peripheral swelling [Unknown]
  - Angioedema [Recovered/Resolved]
